FAERS Safety Report 5131990-X (Version None)
Quarter: 2006Q4

REPORT INFORMATION
  Report Type: 
  Country: None (occurrence: None)
  Receive Date: 20061017
  Receipt Date: 20061006
  Transmission Date: 20070319
  Serious: Yes (Other)
  Sender: FDA-Public Use
  Company Number: 2006094840

PATIENT
  Age: 56 Year
  Sex: Female

DRUGS (2)
  1. QUINAPRIL HCL [Suspect]
     Indication: HYPERTENSION
  2. BENICAR HCT [Suspect]

REACTIONS (1)
  - ENDOMETRIAL CANCER [None]
